FAERS Safety Report 20834401 (Version 2)
Quarter: 2022Q2

REPORT INFORMATION
  Report Type: Other
  Country: US (occurrence: None)
  Receive Date: 20220516
  Receipt Date: 20220627
  Transmission Date: 20220720
  Serious: Yes (Other)
  Sender: FDA-Public Use
  Company Number: US-ROCHE-3095964

PATIENT
  Sex: Female
  Weight: 108.51 kg

DRUGS (9)
  1. OCREVUS [Suspect]
     Active Substance: OCRELIZUMAB
     Indication: Relapsing multiple sclerosis
     Dosage: 600 MG EVERY 24 WEEKS:?18/OCT/2018
     Route: 042
     Dates: start: 20181018
  2. SINGULAIR [Concomitant]
     Active Substance: MONTELUKAST SODIUM
  3. PREDNISONE [Concomitant]
     Active Substance: PREDNISONE
  4. BIOTIN [Concomitant]
     Active Substance: BIOTIN
  5. CALCIUM [Concomitant]
     Active Substance: CALCIUM
  6. ALLEGRA [Concomitant]
     Active Substance: FEXOFENADINE HYDROCHLORIDE
  7. VITAMIN D3 [Concomitant]
     Active Substance: CHOLECALCIFEROL
     Route: 048
  8. VITAMIN C [Concomitant]
     Active Substance: ASCORBIC ACID
  9. DICLOFENAC [Concomitant]
     Active Substance: DICLOFENAC

REACTIONS (5)
  - COVID-19 [Recovered/Resolved]
  - Pain [Not Recovered/Not Resolved]
  - Arthralgia [Unknown]
  - Multiple sclerosis [Not Recovered/Not Resolved]
  - Weight decreased [Not Recovered/Not Resolved]

NARRATIVE: CASE EVENT DATE: 20210101
